FAERS Safety Report 7883691-2 (Version None)
Quarter: 2011Q4

REPORT INFORMATION
  Report Type: 
  Country: None (occurrence: None)
  Receive Date: 20111102
  Receipt Date: 20111021
  Transmission Date: 20120403
  Serious: Yes (Hospitalization)
  Sender: FDA-Public Use
  Company Number: SE-NOVOPROD-269166

PATIENT

DRUGS (4)
  1. LEVOTHYROXINE SODIUM [Concomitant]
     Indication: THYROID DISORDER
     Dosage: 50 UG, QD
     Dates: start: 20070125
  2. NORDITROPIN NORDIFLEX [Suspect]
     Indication: GROWTH HORMONE DEFICIENCY
     Dosage: UNK
     Dates: start: 20070427
  3. RISEDRONATE SODIUM [Concomitant]
     Indication: OSTEOPOROSIS
     Dates: start: 20061215
  4. KALCIPOS-D [Concomitant]
     Indication: OSTEOPOROSIS
     Dates: start: 20040613

REACTIONS (2)
  - RESPIRATORY TRACT INFECTION [None]
  - BLOOD CORTISOL ABNORMAL [None]
